FAERS Safety Report 12140471 (Version 1)
Quarter: 2016Q1

REPORT INFORMATION
  Report Type: Spontaneous
  Country: US (occurrence: US)
  Receive Date: 20160303
  Receipt Date: 20160303
  Transmission Date: 20160526
  Serious: Yes (Hospitalization, Other)
  Sender: FDA-Public Use
  Company Number: US-PFIZER INC-2016114865

PATIENT
  Age: 34 Year
  Sex: Female
  Weight: 68 kg

DRUGS (1)
  1. LYRICA [Suspect]
     Active Substance: PREGABALIN

REACTIONS (8)
  - Nephrolithiasis [Unknown]
  - Urinary tract infection [Unknown]
  - Kidney infection [Unknown]
  - Seizure [Unknown]
  - Bacterial infection [Not Recovered/Not Resolved]
  - Immune system disorder [Not Recovered/Not Resolved]
  - Cellulitis [Unknown]
  - Pneumonia [Recovered/Resolved]

NARRATIVE: CASE EVENT DATE: 201402
